FAERS Safety Report 12196243 (Version 1)
Quarter: 2016Q1

REPORT INFORMATION
  Report Type: Report from Study
  Country: JP (occurrence: JP)
  Receive Date: 20160321
  Receipt Date: 20160321
  Transmission Date: 20160526
  Serious: Yes (Other)
  Sender: FDA-Public Use
  Company Number: JP-JNJFOC-20160316861

PATIENT
  Age: 54 Year
  Sex: Female

DRUGS (11)
  1. PANTOSIN [Concomitant]
     Active Substance: PANTETHINE
     Indication: SCHIZOPHRENIA
     Route: 048
     Dates: start: 20141205
  2. DAIKENCHUTO [Concomitant]
     Active Substance: HERBALS
     Indication: SCHIZOPHRENIA
     Route: 048
     Dates: start: 20141205
  3. XEPLION [Suspect]
     Active Substance: PALIPERIDONE PALMITATE
     Indication: SCHIZOPHRENIA
     Dosage: LEFT DELTOID MUSCLE
     Route: 030
     Dates: start: 20150109, end: 20150109
  4. XEPLION [Suspect]
     Active Substance: PALIPERIDONE PALMITATE
     Indication: SCHIZOPHRENIA
     Dosage: LEFT DELTOID MUSCLE
     Route: 030
     Dates: start: 20150206, end: 20150206
  5. XEPLION [Suspect]
     Active Substance: PALIPERIDONE PALMITATE
     Indication: SCHIZOPHRENIA
     Dosage: RIGHT DELTOID MUSCLE
     Route: 030
     Dates: start: 20150306, end: 20150306
  6. MAGNESIUM OXIDE. [Concomitant]
     Active Substance: MAGNESIUM OXIDE
     Indication: SCHIZOPHRENIA
     Route: 048
     Dates: start: 20131205
  7. XEPLION [Suspect]
     Active Substance: PALIPERIDONE PALMITATE
     Indication: SCHIZOPHRENIA
     Dosage: LEFT DELTOID MUSCLE
     Route: 030
     Dates: start: 20150403, end: 20150403
  8. XEPLION [Suspect]
     Active Substance: PALIPERIDONE PALMITATE
     Indication: SCHIZOPHRENIA
     Dosage: RIGHT DELTOID MUSCLE
     Route: 030
     Dates: start: 20150501, end: 20150501
  9. XEPLION [Suspect]
     Active Substance: PALIPERIDONE PALMITATE
     Indication: SCHIZOPHRENIA
     Dosage: LEFT DELTOID MUSCLE
     Route: 030
     Dates: start: 20150529, end: 20150529
  10. XEPLION [Suspect]
     Active Substance: PALIPERIDONE PALMITATE
     Indication: SCHIZOPHRENIA
     Dosage: LEFT DELTOID MUSCLE
     Route: 030
     Dates: start: 20141212, end: 20141212
  11. XEPLION [Suspect]
     Active Substance: PALIPERIDONE PALMITATE
     Indication: SCHIZOPHRENIA
     Dosage: LEFT DELTOID MUSCLE
     Route: 030
     Dates: start: 20141205, end: 20141205

REACTIONS (2)
  - Parkinsonism [Recovered/Resolved]
  - Rhabdomyolysis [Recovered/Resolved]

NARRATIVE: CASE EVENT DATE: 20150606
